FAERS Safety Report 13088807 (Version 3)
Quarter: 2017Q1

REPORT INFORMATION
  Report Type: Spontaneous
  Country: US (occurrence: US)
  Receive Date: 20170105
  Receipt Date: 20170301
  Transmission Date: 20170428
  Serious: Yes (Other)
  Sender: FDA-Public Use
  Company Number: US-JNJFOC-20170101390

PATIENT
  Age: 46 Year
  Sex: Male
  Weight: 155.13 kg

DRUGS (2)
  1. RISPERDAL CONSTA [Suspect]
     Active Substance: RISPERIDONE
     Indication: SCHIZOPHRENIA
     Dosage: DOSE: 25 MG + 50 MG
     Route: 030
     Dates: start: 20161122
  2. RISPERDAL CONSTA [Suspect]
     Active Substance: RISPERIDONE
     Indication: SCHIZOPHRENIA
     Route: 030
     Dates: end: 201611

REACTIONS (7)
  - Incorrect dose administered [Unknown]
  - Drug dose omission [Unknown]
  - Attention-seeking behaviour [Recovered/Resolved]
  - Device leakage [Unknown]
  - Disease progression [Unknown]
  - Off label use [Unknown]
  - Device defective [Unknown]

NARRATIVE: CASE EVENT DATE: 20161121
